FAERS Safety Report 8172648-2 (Version None)
Quarter: 2012Q1

REPORT INFORMATION
  Report Type: 
  Country: None (occurrence: None)
  Receive Date: 20120229
  Receipt Date: 20120223
  Transmission Date: 20120608
  Serious: No
  Sender: FDA-Public Use
  Company Number: US-PFIZER INC-2012049399

PATIENT
  Sex: Male
  Weight: 97.506 kg

DRUGS (4)
  1. NIFEDIPINE [Suspect]
     Indication: HYPERTENSION
     Dosage: 30 MG, 1X/DAY
     Route: 048
     Dates: start: 20110301
  2. NIFEDIPINE [Suspect]
     Dosage: UNK
     Route: 048
  3. PEPCID [Concomitant]
     Indication: PEPTIC ULCER
     Dosage: UNK
  4. CARAFATE [Concomitant]
     Indication: PEPTIC ULCER
     Dosage: UNK

REACTIONS (2)
  - OEDEMA PERIPHERAL [None]
  - PAIN IN EXTREMITY [None]
